FAERS Safety Report 9430064 (Version 1)
Quarter: 2013Q3

REPORT INFORMATION
  Report Type: Spontaneous
  Country: US (occurrence: US)
  Receive Date: 20130730
  Receipt Date: 20130730
  Transmission Date: 20140515
  Serious: No
  Sender: FDA-Public Use
  Company Number: US-ABBOTT-13P-163-1075624-00

PATIENT
  Age: 79 Year
  Sex: Female
  Weight: 65.83 kg

DRUGS (9)
  1. NIASPAN (COATED) [Suspect]
     Indication: HIGH DENSITY LIPOPROTEIN DECREASED
     Route: 048
     Dates: start: 201303, end: 201303
  2. LISINOPRIL [Concomitant]
     Indication: HYPERTENSION
  3. AMLODIPINE [Concomitant]
     Indication: HYPERTENSION
  4. ZIAC [Concomitant]
     Indication: HYPERTENSION
  5. PROGESTERONE [Concomitant]
     Indication: HORMONE REPLACEMENT THERAPY
  6. PROGESTERONE [Concomitant]
     Indication: NERVOUSNESS
  7. PROGESTERONE [Concomitant]
     Indication: TREMOR
  8. AZOPT EYE DROPS [Concomitant]
     Indication: GLAUCOMA
  9. ALPRAZOLAM [Concomitant]
     Indication: ANXIETY

REACTIONS (4)
  - Abdominal discomfort [Recovering/Resolving]
  - Gastroenteritis viral [Recovered/Resolved]
  - Vomiting [Recovered/Resolved]
  - Diarrhoea [Recovered/Resolved]
